FAERS Safety Report 16930675 (Version 1)
Quarter: 2019Q4

REPORT INFORMATION
  Report Type: Spontaneous
  Country: US (occurrence: US)
  Receive Date: 20191017
  Receipt Date: 20191017
  Transmission Date: 20200122
  Serious: No
  Sender: FDA-Public Use
  Company Number: US-JUBILANT CADISTA PHARMACEUTICALS-2019JUB00313

PATIENT
  Sex: Female

DRUGS (4)
  1. PREDNISONE. [Suspect]
     Active Substance: PREDNISONE
     Dosage: 20 MG, 1X/DAY FOR ONE WEEK
     Route: 048
     Dates: start: 2019, end: 2019
  2. PREDNISONE. [Suspect]
     Active Substance: PREDNISONE
     Indication: PROCTITIS ULCERATIVE
     Dosage: 40 MG, 1X/DAY FOR ONE WEEK
     Route: 048
     Dates: start: 201904, end: 2019
  3. PREDNISONE. [Suspect]
     Active Substance: PREDNISONE
     Dosage: 30 MG, 1X/DAY FOR ONE WEEK
     Route: 048
     Dates: start: 2019, end: 2019
  4. PREDNISONE. [Suspect]
     Active Substance: PREDNISONE
     Dosage: 10 MG, 1X/DAY FOR ONE WEEK
     Route: 048
     Dates: start: 2019, end: 201905

REACTIONS (1)
  - Breath sounds abnormal [Not Recovered/Not Resolved]

NARRATIVE: CASE EVENT DATE: 2019
